FAERS Safety Report 6338265-1 (Version None)
Quarter: 2009Q3

REPORT INFORMATION
  Report Type: 
  Country: None (occurrence: None)
  Receive Date: 20090902
  Receipt Date: 20090824
  Transmission Date: 20100115
  Serious: Yes (Other)
  Sender: FDA-Public Use
  Company Number: TW-WATSON-2009-06925

PATIENT
  Age: 37 Year
  Sex: Female

DRUGS (2)
  1. METHYLPREDNISOLONE ACETATE [Suspect]
     Indication: SPINAL CORD INJURY CERVICAL
     Dosage: 30 MG/KG, OVER 15 MINUTES
     Route: 040
     Dates: start: 20080301, end: 20080301
  2. METHYLPREDNISOLONE ACETATE [Suspect]
     Dosage: 5.4 MG/KG,/HOUR FOR 23 HOURS
     Route: 040
     Dates: start: 20080301, end: 20080301

REACTIONS (1)
  - TUMOUR LYSIS SYNDROME [None]
